FAERS Safety Report 23661244 (Version 1)
Quarter: 2024Q1

REPORT INFORMATION
  Report Type: Spontaneous
  Country: CN (occurrence: CN)
  Receive Date: 20240322
  Receipt Date: 20240322
  Transmission Date: 20240409
  Serious: Yes (Hospitalization, Other)
  Sender: FDA-Public Use
  Company Number: CN-SHANGHAI JUNSHI BIOSCIENCES CO., LTD.-CN2024009526

PATIENT

DRUGS (3)
  1. TORIPALIMAB [Suspect]
     Active Substance: TORIPALIMAB
     Indication: Lung carcinoma cell type unspecified recurrent
     Dosage: 240 MG, EVERY 21 DAYS
     Route: 041
     Dates: start: 20240112, end: 20240112
  2. ETOPOSIDE [Suspect]
     Active Substance: ETOPOSIDE
     Indication: Lung carcinoma cell type unspecified recurrent
     Dosage: 0.1 G, EVERY 21 DAYS
     Route: 041
     Dates: start: 20240112, end: 20240116
  3. CISPLATIN [Suspect]
     Active Substance: CISPLATIN
     Indication: Lung carcinoma cell type unspecified recurrent
     Dosage: 60 MG, EVERY 21 DAYS
     Route: 041
     Dates: start: 20240112, end: 20240113

REACTIONS (2)
  - White blood cell count decreased [Recovering/Resolving]
  - Platelet count decreased [Recovered/Resolved]

NARRATIVE: CASE EVENT DATE: 20240116
